FAERS Safety Report 12009948 (Version 2)
Quarter: 2016Q1

REPORT INFORMATION
  Report Type: Report from Study
  Country: NA (occurrence: NA)
  Receive Date: 20160205
  Receipt Date: 20160215
  Transmission Date: 20160526
  Serious: Yes (Death, Hospitalization, Other)
  Sender: FDA-Public Use
  Company Number: PHHY2016NA014844

PATIENT
  Age: 30 Year
  Sex: Female
  Weight: 69 kg

DRUGS (1)
  1. GLIVEC [Suspect]
     Active Substance: IMATINIB MESYLATE
     Indication: CHRONIC MYELOID LEUKAEMIA
     Dosage: 400 MG, QD
     Route: 048
     Dates: start: 20140818

REACTIONS (9)
  - Red cell distribution width increased [Unknown]
  - Haemoglobin decreased [Unknown]
  - Platelet count decreased [Unknown]
  - Disseminated intravascular coagulation [Unknown]
  - Sepsis [Fatal]
  - Diarrhoea [Unknown]
  - Pyrexia [Unknown]
  - Haematocrit decreased [Unknown]
  - Red blood cell count decreased [Unknown]

NARRATIVE: CASE EVENT DATE: 20151012
